FAERS Safety Report 7779752-9 (Version None)
Quarter: 2011Q3

REPORT INFORMATION
  Report Type: 
  Country: None (occurrence: None)
  Receive Date: 20110927
  Receipt Date: 20110607
  Transmission Date: 20111222
  Serious: No
  Sender: FDA-Public Use
  Company Number: US-ASTRAZENECA-2011SE08480

PATIENT
  Age: 55 Year
  Sex: Female

DRUGS (1)
  1. SEROQUEL [Suspect]
     Indication: BIPOLAR DISORDER
     Dosage: TOTAL DAILY DOSE 100 MG
     Route: 048

REACTIONS (4)
  - TACHYPHRENIA [None]
  - INSOMNIA [None]
  - ABNORMAL DREAMS [None]
  - DRUG DOSE OMISSION [None]
